FAERS Safety Report 21496012 (Version 1)
Quarter: 2022Q4

REPORT INFORMATION
  Report Type: Spontaneous
  Country: US (occurrence: US)
  Receive Date: 20221022
  Receipt Date: 20221022
  Transmission Date: 20230113
  Serious: Yes (Other)
  Sender: FDA-Public Use
  Company Number: US-AMGEN-USASP2022178694

PATIENT
  Sex: Female

DRUGS (1)
  1. PROLIA [Suspect]
     Active Substance: DENOSUMAB
     Indication: Product used for unknown indication
     Dosage: UNK, Q6MO
     Route: 065

REACTIONS (7)
  - Brain neoplasm [Unknown]
  - Neuroendocrine carcinoma metastatic [Unknown]
  - Disability [Unknown]
  - Skin cancer [Unknown]
  - Jaw disorder [Unknown]
  - Large intestine polyp [Unknown]
  - Skin disorder [Unknown]
